FAERS Safety Report 10480729 (Version 1)
Quarter: 2014Q3

REPORT INFORMATION
  Report Type: Spontaneous
  Country: DK (occurrence: DK)
  Receive Date: 20140929
  Receipt Date: 20140929
  Transmission Date: 20150326
  Serious: Yes (Hospitalization)
  Sender: FDA-Public Use
  Company Number: DK-SA-2014SA130800

PATIENT
  Sex: Male

DRUGS (2)
  1. JEVTANA [Suspect]
     Active Substance: CABAZITAXEL
     Indication: PROSTATE CANCER
     Route: 042
     Dates: start: 20120510
  2. JEVTANA [Suspect]
     Active Substance: CABAZITAXEL
     Indication: PROSTATE CANCER
     Route: 042
     Dates: start: 201208, end: 20121128

REACTIONS (5)
  - Dizziness [Unknown]
  - Dyspnoea [Unknown]
  - Unevaluable event [Unknown]
  - Decreased immune responsiveness [Unknown]
  - General physical health deterioration [Unknown]

NARRATIVE: CASE EVENT DATE: 201205
